FAERS Safety Report 21280539 (Version 1)
Quarter: 2022Q3

REPORT INFORMATION
  Report Type: Spontaneous
  Country: NL (occurrence: NL)
  Receive Date: 20220901
  Receipt Date: 20220901
  Transmission Date: 20221027
  Serious: Yes (Other)
  Sender: FDA-Public Use
  Company Number: None

PATIENT
  Age: 31 Year
  Sex: Female

DRUGS (3)
  1. AMLODIPINE [Suspect]
     Active Substance: AMLODIPINE BESYLATE
     Indication: Hypertension
     Dosage: 5 MILLIGRAM DAILY; 1 X DAILY 1, FORM STRENGTH 5MG / BRAND NAME NOT SPECIFIED, DURATION-9 DAYS
     Dates: start: 20220713, end: 20220722
  2. HYDROCHLOROTHIAZIDE APOTEX [Concomitant]
     Indication: Product used for unknown indication
     Dosage: FORM STRENGTH 12.5 MG, THERAPY START DATE AND END DATE: ASKU
  3. DESOGESTREL [Concomitant]
     Active Substance: DESOGESTREL
     Indication: Product used for unknown indication
     Dosage: FORM STRENGTH 0.075 MG- NON-CURRENT DRUG, THERAPY START DATE AND END DATE: ASKU

REACTIONS (3)
  - Suicidal ideation [Recovering/Resolving]
  - Depressed mood [Recovering/Resolving]
  - Wrong drug [Unknown]

NARRATIVE: CASE EVENT DATE: 20220715
